FAERS Safety Report 12714795 (Version 1)
Quarter: 2016Q3

REPORT INFORMATION
  Report Type: Report from Study
  Country: US (occurrence: US)
  Receive Date: 20160905
  Receipt Date: 20160905
  Transmission Date: 20161109
  Serious: Yes (Other)
  Sender: FDA-Public Use
  Company Number: US-JNJFOC-20160626640

PATIENT
  Age: 75 Year
  Sex: Male

DRUGS (1)
  1. IMBRUVICA [Suspect]
     Active Substance: IBRUTINIB
     Indication: CHRONIC LYMPHOCYTIC LEUKAEMIA
     Route: 048
     Dates: start: 20150225

REACTIONS (5)
  - Fall [Unknown]
  - Localised infection [Unknown]
  - Nausea [Unknown]
  - Rhinorrhoea [Unknown]
  - Rib fracture [Unknown]

NARRATIVE: CASE EVENT DATE: 20160803
